FAERS Safety Report 6444035-6 (Version None)
Quarter: 2009Q4

REPORT INFORMATION
  Report Type: 
  Country: None (occurrence: None)
  Receive Date: 20091116
  Receipt Date: 20091116
  Transmission Date: 20100525
  Serious: Yes (Other)
  Sender: FDA-Public Use
  Company Number: None

PATIENT
  Age: 10 Year
  Sex: Male
  Weight: 34.927 kg

DRUGS (1)
  1. TAMIFLU [Suspect]
     Indication: H1N1 INFLUENZA
     Dosage: 4ML 2 TIMES DAILY PO
     Route: 048
     Dates: start: 20091108, end: 20091113

REACTIONS (4)
  - AGGRESSION [None]
  - DIZZINESS [None]
  - IMPULSIVE BEHAVIOUR [None]
  - PYROMANIA [None]
